FAERS Safety Report 8795545 (Version 1)
Quarter: 2012Q4

REPORT INFORMATION
  Report Type: 
  Country: US (occurrence: US)
  Receive Date: 20120917
  Receipt Date: 20120917
  Transmission Date: 20130627
  Serious: No
  Sender: FDA-Public Use
  Company Number: US-B.I. PHARMACEUTICALS,INC./RIDGEFIELD-2012-BP-22381BP

PATIENT
  Age: 86 Year
  Sex: Female
  Weight: 79 kg

DRUGS (13)
  1. SPIRIVA [Suspect]
     Indication: CHRONIC OBSTRUCTIVE PULMONARY DISEASE
     Dosage: 18 mcg
     Route: 055
     Dates: start: 201205
  2. SPIRIVA [Suspect]
     Route: 048
     Dates: start: 20120910, end: 20120910
  3. ALBUTEROL [Concomitant]
     Indication: CHRONIC OBSTRUCTIVE PULMONARY DISEASE
     Dosage: 1 mcg
     Route: 055
     Dates: start: 2008
  4. BROVANA [Concomitant]
     Indication: CHRONIC OBSTRUCTIVE PULMONARY DISEASE
     Route: 055
     Dates: start: 2009
  5. BUDESONIDE [Concomitant]
     Indication: CHRONIC OBSTRUCTIVE PULMONARY DISEASE
     Route: 055
     Dates: start: 2011
  6. VENTOLIN [Concomitant]
     Indication: CHRONIC OBSTRUCTIVE PULMONARY DISEASE
     Route: 055
     Dates: start: 2008
  7. ATENOLOL [Concomitant]
     Indication: HYPERTENSION
     Dosage: 50 mg
     Dates: start: 2011
  8. NORVASC [Concomitant]
     Indication: HYPERTENSION
     Dates: start: 1992
  9. NORPACE [Concomitant]
     Indication: HYPERTENSION
     Dates: start: 2002
  10. LASIX [Concomitant]
     Indication: CARDIAC FAILURE CONGESTIVE
     Dosage: 10 mg
     Dates: start: 2010
  11. LEVBID [Concomitant]
     Indication: IRRITABLE BOWEL SYNDROME
     Dates: start: 201206
  12. DEXILANT [Concomitant]
     Indication: GASTROOESOPHAGEAL REFLUX DISEASE
     Dates: start: 2011
  13. CHOLESTYRAMINE [Concomitant]
     Indication: SUPPLEMENTATION THERAPY
     Dates: start: 2007

REACTIONS (1)
  - Incorrect route of drug administration [Recovered/Resolved]
